FAERS Safety Report 5031421-4 (Version None)
Quarter: 2006Q2

REPORT INFORMATION
  Report Type: 
  Country: None (occurrence: None)
  Receive Date: 20060616
  Receipt Date: 20060530
  Transmission Date: 20061013
  Serious: Yes (Hospitalization)
  Sender: FDA-Public Use
  Company Number: DE200605006471

PATIENT
  Sex: Female
  Weight: 76 kg

DRUGS (5)
  1. GEMCITABINE HYDROCHLORIDE (GEMCITABINE HYDROCHLORIDE UNKNOWN FORMULATI [Suspect]
     Indication: BREAST CANCER
     Dosage: 1900 MG, INTRAVENOUS
     Route: 042
     Dates: start: 20060509, end: 20060523
  2. DOCETAXEL (DOCETAXEL) [Suspect]
     Indication: BREAST CANCER
     Dosage: 140 MG, INTRAVENOUS
     Route: 042
     Dates: start: 20060509, end: 20060509
  3. DEXAMETHASONE [Concomitant]
  4. ZOFRAN [Concomitant]
  5. CIPROFLOXACIN [Concomitant]

REACTIONS (3)
  - HAEMOGLOBIN DECREASED [None]
  - MENORRHAGIA [None]
  - OVARIAN CANCER [None]
